FAERS Safety Report 8062827-7 (Version None)
Quarter: 2012Q1

REPORT INFORMATION
  Report Type: 
  Country: None (occurrence: None)
  Receive Date: 20120123
  Receipt Date: 20120117
  Transmission Date: 20120608
  Serious: Yes (Other)
  Sender: FDA-Public Use
  Company Number: NL-ROCHE-1022926

PATIENT
  Sex: Female

DRUGS (6)
  1. ACTEMRA [Suspect]
     Indication: RHEUMATOID ARTHRITIS
     Route: 042
     Dates: start: 20111014, end: 20111116
  2. LEVOTHYROXINE SODIUM [Concomitant]
  3. LEVOTHYROXINE SODIUM [Concomitant]
  4. CALCIUM CARBONATE [Concomitant]
     Dosage: 500 MG/4000 IU
  5. NEXIUM [Concomitant]
  6. FOSAMAX [Concomitant]

REACTIONS (1)
  - INTERSTITIAL LUNG DISEASE [None]
